FAERS Safety Report 16368041 (Version 3)
Quarter: 2019Q2

REPORT INFORMATION
  Report Type: Report from Study
  Country: TW (occurrence: TW)
  Receive Date: 20190529
  Receipt Date: 20190610
  Transmission Date: 20190711
  Serious: Yes (Death, Hospitalization, Other)
  Sender: FDA-Public Use
  Company Number: TW-BAYER-2019-096902

PATIENT
  Age: 55 Year
  Sex: Male

DRUGS (2)
  1. XOFIGO [Suspect]
     Active Substance: RADIUM RA-223 DICHLORIDE
     Indication: HORMONE-REFRACTORY PROSTATE CANCER
     Dosage: UNK
     Dates: start: 20190403, end: 20190515
  2. XOFIGO [Suspect]
     Active Substance: RADIUM RA-223 DICHLORIDE
     Indication: METASTASIS

REACTIONS (7)
  - Syncope [Fatal]
  - Fall [None]
  - Vomiting [None]
  - Cerebral haemorrhage [Fatal]
  - Haematochezia [None]
  - Haematemesis [None]
  - Coma [Fatal]

NARRATIVE: CASE EVENT DATE: 2019
